FAERS Safety Report 17102948 (Version 4)
Quarter: 2022Q1

REPORT INFORMATION
  Report Type: Report from Study
  Country: JP (occurrence: JP)
  Receive Date: 20191203
  Receipt Date: 20220206
  Transmission Date: 20220424
  Serious: Yes (Hospitalization)
  Sender: FDA-Public Use
  Company Number: JP-ABBVIE-17P-087-1934277-00

PATIENT
  Age: 47 Year
  Sex: Female
  Weight: 49 kg

DRUGS (9)
  1. CARBIDOPA\LEVODOPA [Suspect]
     Active Substance: CARBIDOPA\LEVODOPA
     Indication: Parkinson^s disease
     Dosage: MD: 4 ML, CD: 1.2 ML/HR X 17 HR
     Route: 050
     Dates: start: 20161226, end: 20170102
  2. CARBIDOPA\LEVODOPA [Suspect]
     Active Substance: CARBIDOPA\LEVODOPA
     Dosage: MD: 4 ML, CD: 1.2 ML/HR X 17 HR
     Route: 050
     Dates: start: 20170130
  3. CARBIDOPA\LEVODOPA [Suspect]
     Active Substance: CARBIDOPA\LEVODOPA
     Dosage: CD: 5 ML/HR
     Route: 050
     Dates: start: 20190830, end: 2019
  4. CARBIDOPA\LEVODOPA [Suspect]
     Active Substance: CARBIDOPA\LEVODOPA
     Dosage: CD: 4 ML/HR
     Route: 050
     Dates: start: 20190912
  5. CARBIDOPA\LEVODOPA [Suspect]
     Active Substance: CARBIDOPA\LEVODOPA
     Route: 050
  6. ROPINIROLE HYDROCHLORIDE [Concomitant]
     Active Substance: ROPINIROLE HYDROCHLORIDE
     Indication: Parkinson^s disease
     Route: 048
  7. ISTRADEFYLLINE [Concomitant]
     Active Substance: ISTRADEFYLLINE
     Indication: Prophylaxis
     Route: 048
     Dates: start: 20170411
  8. FLUNITRAZEPAM [Concomitant]
     Active Substance: FLUNITRAZEPAM
     Indication: Insomnia
     Route: 048
  9. MAGNESIUM OXIDE [Concomitant]
     Active Substance: MAGNESIUM OXIDE
     Indication: Constipation
     Route: 048

REACTIONS (18)
  - Intussusception [Unknown]
  - On and off phenomenon [Recovered/Resolved]
  - Intestinal obstruction [Recovering/Resolving]
  - Bezoar [Recovering/Resolving]
  - Device connection issue [Unknown]
  - Ovarian disorder [Unknown]
  - Device occlusion [Recovered/Resolved]
  - Device kink [Recovered/Resolved]
  - Muscle rigidity [Unknown]
  - Mobility decreased [Recovered/Resolved]
  - Device dislocation [Recovered/Resolved]
  - Device occlusion [Recovered/Resolved]
  - Asthenia [Unknown]
  - Pain [Unknown]
  - On and off phenomenon [Recovered/Resolved]
  - On and off phenomenon [Unknown]
  - Mobility decreased [Unknown]
  - On and off phenomenon [Unknown]

NARRATIVE: CASE EVENT DATE: 20170517
